FAERS Safety Report 8249976-5 (Version None)
Quarter: 2012Q1

REPORT INFORMATION
  Report Type: 
  Country: None (occurrence: None)
  Receive Date: 20120327
  Receipt Date: 20120316
  Transmission Date: 20120608
  Serious: No
  Sender: FDA-Public Use
  Company Number: 2012SP015025

PATIENT
  Age: 22 Year
  Sex: Female

DRUGS (4)
  1. SYCREST (ASENAPINE /05706901/) [Suspect]
     Indication: BIPOLAR I DISORDER
     Dosage: 5 MG;QD;SL ; 5 MG;BID;SL ; 5 MG
     Route: 060
     Dates: start: 20120316
  2. SYCREST (ASENAPINE /05706901/) [Suspect]
     Indication: BIPOLAR I DISORDER
     Dosage: 5 MG;QD;SL ; 5 MG;BID;SL ; 5 MG
     Route: 060
     Dates: start: 20120314, end: 20120314
  3. SYCREST (ASENAPINE /05706901/) [Suspect]
     Indication: BIPOLAR I DISORDER
     Dosage: 5 MG;QD;SL ; 5 MG;BID;SL ; 5 MG
     Route: 060
     Dates: start: 20120315, end: 20120315
  4. OLANZAPINE [Concomitant]

REACTIONS (4)
  - PRURITUS GENERALISED [None]
  - HYPOAESTHESIA ORAL [None]
  - HOT FLUSH [None]
  - ECZEMA [None]
